FAERS Safety Report 13065591 (Version 1)
Quarter: 2016Q4

REPORT INFORMATION
  Report Type: Spontaneous
  Country: JP (occurrence: JP)
  Receive Date: 20161227
  Receipt Date: 20161227
  Transmission Date: 20170207
  Serious: Yes (Hospitalization)
  Sender: FDA-Public Use
  Company Number: JP-IPCA LABORATORIES LIMITED-IPC201612-001013

PATIENT
  Age: 86 Year
  Sex: Female

DRUGS (2)
  1. FRESH FROZEN PLASMA [Concomitant]
     Active Substance: HUMAN PLASMA
  2. WARFARIN [Suspect]
     Active Substance: WARFARIN

REACTIONS (3)
  - Paraplegia [Unknown]
  - Proctoparalysis [Unknown]
  - Spinal epidural haematoma [Unknown]
